FAERS Safety Report 8584406-5 (Version None)
Quarter: 2012Q3

REPORT INFORMATION
  Report Type: 
  Country: None (occurrence: None)
  Receive Date: 20120810
  Receipt Date: 20120803
  Transmission Date: 20120928
  Serious: Yes (Hospitalization)
  Sender: FDA-Public Use
  Company Number: US-009507513-1208USA002844

PATIENT

DRUGS (3)
  1. OXYCODONE HCL [Suspect]
  2. TRAZODONE HCL [Suspect]
  3. ELAVIL [Suspect]
     Route: 048

REACTIONS (1)
  - HYPOXIC-ISCHAEMIC ENCEPHALOPATHY [None]
